FAERS Safety Report 4896126-9 (Version None)
Quarter: 2005Q4

REPORT INFORMATION
  Report Type: 
  Country: None (occurrence: None)
  Receive Date: 20051220
  Receipt Date: 20050617
  Transmission Date: 20060501
  Serious: Yes (Hospitalization)
  Sender: FDA-Public Use
  Company Number: US144960

PATIENT
  Age: 57 Year
  Sex: Female

DRUGS (5)
  1. ENBREL [Suspect]
     Indication: RHEUMATOID ARTHRITIS
     Dosage: 25 MG, 2 IN 1 WEEKS
     Dates: start: 20010702, end: 20030731
  2. INDAPAMIDE [Concomitant]
  3. BISOPROLOL FUMARATE [Concomitant]
  4. AMLODIPINE BESYLATE [Concomitant]
  5. NAPROXEN [Concomitant]

REACTIONS (1)
  - ENDOMETRIAL CANCER [None]
